FAERS Safety Report 9392344 (Version 5)
Quarter: 2014Q1

REPORT INFORMATION
  Report Type: Report from Study
  Country: CA (occurrence: CA)
  Receive Date: 20130710
  Receipt Date: 20140328
  Transmission Date: 20141002
  Serious: Yes (Hospitalization, Other)
  Sender: FDA-Public Use
  Company Number: CA-ROCHE-1246754

PATIENT
  Sex: Female
  Weight: 90.7 kg

DRUGS (14)
  1. RITUXAN [Suspect]
     Indication: RHEUMATOID ARTHRITIS
     Route: 042
     Dates: start: 20081211
  2. RITUXAN [Suspect]
     Route: 065
     Dates: start: 20130110
  3. ROSUVASTATIN [Suspect]
     Indication: BLOOD CHOLESTEROL INCREASED
     Route: 048
     Dates: start: 2013, end: 20130717
  4. METFORMIN [Concomitant]
     Route: 065
  5. DIPHENHYDRAMINE HCL [Concomitant]
     Indication: PREMEDICATION
     Route: 048
     Dates: start: 20090630
  6. ACETAMINOPHEN [Concomitant]
     Indication: PREMEDICATION
     Route: 048
     Dates: start: 20090630
  7. METHYLPREDNISOLONE [Concomitant]
     Indication: PREMEDICATION
     Route: 042
     Dates: start: 20090630
  8. CARBOCAL D [Concomitant]
  9. VITAMIN B12 [Concomitant]
     Route: 065
  10. GLICLAZIDE [Concomitant]
     Route: 065
  11. AVAPRO [Concomitant]
     Route: 065
  12. ASAPHEN [Concomitant]
  13. BISOPROLOL [Concomitant]
     Route: 065
  14. FUROSEMIDE [Concomitant]
     Route: 065

REACTIONS (8)
  - Pneumonia [Unknown]
  - Blood cholesterol increased [Not Recovered/Not Resolved]
  - Blood glucose increased [Not Recovered/Not Resolved]
  - Depression [Unknown]
  - Anxiety [Unknown]
  - Ear infection [Unknown]
  - Influenza [Unknown]
  - Swelling [Unknown]
